FAERS Safety Report 7951435-1 (Version None)
Quarter: 2011Q4

REPORT INFORMATION
  Report Type: 
  Country: None (occurrence: None)
  Receive Date: 20111201
  Receipt Date: 20111122
  Transmission Date: 20120403
  Serious: Yes (Hospitalization)
  Sender: FDA-Public Use
  Company Number: US-BAYER-2011-029564

PATIENT
  Age: 49 Year
  Sex: Female
  Weight: 63.946 kg

DRUGS (8)
  1. ALLEGRA [Concomitant]
  2. YASMIN [Suspect]
     Indication: MENSTRUAL CYCLE MANAGEMENT
     Dosage: UNK
     Dates: start: 20010101, end: 20090721
  3. NAPROXEN [Concomitant]
  4. KEFLEX [Concomitant]
     Indication: RHINITIS
  5. IBUPROFEN [Concomitant]
  6. FLUTICASONE PROPIONATE [Concomitant]
     Indication: PROPHYLAXIS
     Dosage: UNK
     Dates: start: 20020101
  7. BECONASE [Concomitant]
     Indication: EAR INFECTION
     Route: 045
  8. UNKNOWN DRUG [Concomitant]
     Indication: MULTIPLE ALLERGIES

REACTIONS (3)
  - PAIN [None]
  - INJURY [None]
  - PULMONARY EMBOLISM [None]
